FAERS Safety Report 4849612-1 (Version None)
Quarter: 2005Q4

REPORT INFORMATION
  Report Type: 
  Country: None (occurrence: None)
  Receive Date: 20051207
  Receipt Date: 20051129
  Transmission Date: 20060501
  Serious: Yes (Hospitalization)
  Sender: FDA-Public Use
  Company Number: 2005-11-1646

PATIENT
  Age: 38 Year
  Sex: Male

DRUGS (2)
  1. CELESTONE [Suspect]
     Indication: CORNEAL TRANSPLANT
     Dosage: 2 MG
  2. CELESTONE [Suspect]
     Indication: PROPHYLAXIS
     Dosage: 2 MG

REACTIONS (9)
  - ABDOMINAL PAIN [None]
  - AORTIC DISORDER [None]
  - FALL [None]
  - HAEMORRHAGE [None]
  - LOSS OF CONSCIOUSNESS [None]
  - PNEUMONIA [None]
  - POLYTRAUMATISM [None]
  - PULMONARY EMBOLISM [None]
  - SKIN LACERATION [None]
